FAERS Safety Report 8923311 (Version 1)
Quarter: 2012Q4

REPORT INFORMATION
  Report Type: Spontaneous
  Country: US (occurrence: None)
  Receive Date: 20121115
  Receipt Date: 20121115
  Transmission Date: 20130627
  Serious: No
  Sender: FDA-Public Use
  Company Number: None

PATIENT
  Age: 29 Year
  Sex: Male

DRUGS (1)
  1. AMOXICILLIN [Suspect]
     Indication: TOOTHACHE
     Dates: start: 20091221, end: 20091224

REACTIONS (9)
  - Mallory-Weiss syndrome [None]
  - Dialysis [None]
  - Renal failure [None]
  - Drug-induced liver injury [None]
  - Hepatitis B [None]
  - Upper gastrointestinal haemorrhage [None]
  - Nausea [None]
  - Vomiting [None]
  - Decreased appetite [None]
